FAERS Safety Report 5910304-9 (Version None)
Quarter: 2008Q4

REPORT INFORMATION
  Report Type: 
  Country: None (occurrence: None)
  Receive Date: 20081007
  Receipt Date: 20071112
  Transmission Date: 20090506
  Serious: Yes (Other)
  Sender: FDA-Public Use
  Company Number: US-ASTRAZENECA-2007UW26212

PATIENT
  Age: 57 Year
  Sex: Female

DRUGS (2)
  1. ARIMIDEX [Suspect]
     Indication: BREAST CANCER
     Route: 048
     Dates: start: 20070901
  2. CHEMOTHERAPY [Concomitant]
     Indication: BREAST CANCER

REACTIONS (1)
  - WEIGHT DECREASED [None]
